FAERS Safety Report 25864553 (Version 1)
Quarter: 2025Q3

REPORT INFORMATION
  Report Type: Spontaneous
  Country: US (occurrence: None)
  Receive Date: 20250929
  Receipt Date: 20250929
  Transmission Date: 20251020
  Serious: Yes (Hospitalization)
  Sender: FDA-CTU
  Company Number: None

PATIENT
  Age: 75 Year
  Sex: Female
  Weight: 74.25 kg

DRUGS (14)
  1. CYTOXAN [Suspect]
     Active Substance: CYCLOPHOSPHAMIDE
     Indication: Breast cancer
  2. TAXOTERE [Suspect]
     Active Substance: DOCETAXEL
  3. FLUOXETINE [Concomitant]
     Active Substance: FLUOXETINE HYDROCHLORIDE
  4. GABAPENTIN [Concomitant]
     Active Substance: GABAPENTIN
  5. ISOSORBIDE [Concomitant]
     Active Substance: ISOSORBIDE
  6. METOPROLOL [Concomitant]
     Active Substance: METOPROLOL
  7. LOSARTAN [Concomitant]
     Active Substance: LOSARTAN
  8. LEVOTHYROXINE [Concomitant]
     Active Substance: LEVOTHYROXINE
  9. ATORVASTATIN [Concomitant]
     Active Substance: ATORVASTATIN
  10. PANTOPRAZOLE [Concomitant]
     Active Substance: PANTOPRAZOLE
  11. ASPIRIN [Concomitant]
     Active Substance: ASPIRIN
  12. VITAMINS [Concomitant]
     Active Substance: VITAMINS
  13. VITAMIN D3 [Concomitant]
     Active Substance: CHOLECALCIFEROL
  14. VITAMIN B COMPLEX [Concomitant]
     Active Substance: CYANOCOBALAMIN\DEXPANTHENOL\NIACINAMIDE\PYRIDOXINE HYDROCHLORIDE\RIBOFLAVIN 5^-PHOSPHATE SODIUM\THIA

REACTIONS (2)
  - Chronic lymphocytic leukaemia [None]
  - B-cell small lymphocytic lymphoma [None]

NARRATIVE: CASE EVENT DATE: 20150315
